FAERS Safety Report 7699499-7 (Version None)
Quarter: 2011Q3

REPORT INFORMATION
  Report Type: 
  Country: None (occurrence: None)
  Receive Date: 20110820
  Receipt Date: 20110408
  Transmission Date: 20111222
  Serious: No
  Sender: FDA-Public Use
  Company Number: US-ALLERGAN-1104977US

PATIENT
  Age: 60 Year
  Sex: Female

DRUGS (5)
  1. LIPITOR [Concomitant]
     Indication: BLOOD CHOLESTEROL
     Dosage: 20 MG, QD
     Dates: start: 20060101
  2. VALIUM [Concomitant]
     Indication: MICTURITION URGENCY
     Dosage: UNK
  3. PERCOCET [Concomitant]
     Indication: MICTURITION URGENCY
     Dosage: UNK
  4. OXYCODONE HCL [Concomitant]
     Indication: MICTURITION URGENCY
     Dosage: UNK
  5. SANCTURA XR [Suspect]
     Indication: MICTURITION URGENCY
     Dosage: 60 MG, QD
     Route: 048
     Dates: start: 20110201

REACTIONS (4)
  - FATIGUE [None]
  - INFLUENZA LIKE ILLNESS [None]
  - DRY MOUTH [None]
  - PAIN [None]
